FAERS Safety Report 16701934 (Version 1)
Quarter: 2019Q3

REPORT INFORMATION
  Report Type: Spontaneous
  Country: US (occurrence: US)
  Receive Date: 20190627
  Receipt Date: 20190627
  Transmission Date: 20191004
  Serious: No
  Sender: FDA-Public Use
  Company Number: None

PATIENT
  Age: 67 Year
  Sex: Female

DRUGS (1)
  1. AZITHROMYCIN 250MG 6 TAB PACK [Suspect]
     Active Substance: AZITHROMYCIN
     Indication: DENTAL DISORDER PROPHYLAXIS
     Dates: start: 20190620, end: 20190626

REACTIONS (3)
  - Constipation [None]
  - Gingival operation [None]
  - Impaired healing [None]

NARRATIVE: CASE EVENT DATE: 20190627
